FAERS Safety Report 8025271-4 (Version None)
Quarter: 2012Q1

REPORT INFORMATION
  Report Type: 
  Country: None (occurrence: None)
  Receive Date: 20120105
  Receipt Date: 20111122
  Transmission Date: 20120608
  Serious: Yes (Hospitalization)
  Sender: FDA-Public Use
  Company Number: DE-ROCHE-1011853

PATIENT
  Sex: Female
  Weight: 68 kg

DRUGS (3)
  1. DESMOPRESSIN ACETATE [Concomitant]
     Indication: DIABETES INSIPIDUS
  2. TAXOL [Concomitant]
     Indication: BREAST CANCER METASTATIC
  3. AVASTIN [Suspect]
     Indication: BREAST CANCER METASTATIC
     Dates: start: 20111109

REACTIONS (7)
  - HYPOKALAEMIA [None]
  - VOMITING [None]
  - BLOOD CORTICOTROPHIN DECREASED [None]
  - NAUSEA [None]
  - HYPONATRAEMIA [None]
  - HYPOTENSION [None]
  - CIRCULATORY COLLAPSE [None]
